FAERS Safety Report 9073646 (Version 1)
Quarter: 2013Q1

REPORT INFORMATION
  Report Type: Report from Study
  Country: US (occurrence: US)
  Receive Date: 20130129
  Receipt Date: 20130129
  Transmission Date: 20140127
  Serious: No
  Sender: FDA-Public Use
  Company Number: US-ABBOTT-12P-163-0892939-00

PATIENT
  Age: 67 Year
  Sex: Female
  Weight: 90.8 kg

DRUGS (4)
  1. HUMIRA 40 MG/ 0.8 ML PRE-FILLED SYRINGE [Suspect]
     Indication: RHEUMATOID ARTHRITIS
     Dates: start: 20111206, end: 201201
  2. HUMIRA 40 MG/ 0.8 ML PRE-FILLED SYRINGE [Suspect]
     Dates: start: 20120125, end: 201203
  3. CORTISONE [Concomitant]
     Indication: OEDEMA PERIPHERAL
     Dates: start: 20111207, end: 20111207
  4. CORTISONE [Concomitant]
     Indication: OEDEMA PERIPHERAL

REACTIONS (3)
  - Oedema peripheral [Not Recovered/Not Resolved]
  - Local swelling [Not Recovered/Not Resolved]
  - Drug ineffective [Not Recovered/Not Resolved]
